FAERS Safety Report 5481920-6 (Version None)
Quarter: 2007Q4

REPORT INFORMATION
  Report Type: 
  Country: None (occurrence: None)
  Receive Date: 20071004
  Receipt Date: 20070925
  Transmission Date: 20080405
  Serious: Yes (Hospitalization)
  Sender: FDA-Public Use
  Company Number: 2007BI011961

PATIENT
  Age: 53 Year
  Sex: Male
  Weight: 77 kg

DRUGS (10)
  1. NATALIZUMAB [Suspect]
     Indication: MULTIPLE SCLEROSIS
     Dosage: 300 MG; QM; IV
     Route: 042
     Dates: start: 20070215, end: 20070101
  2. AVONEX [Concomitant]
  3. BACLOFEN [Concomitant]
  4. ROBAXIN [Concomitant]
  5. ATARAX [Concomitant]
  6. MORPHINE [Concomitant]
  7. NEURONTIN [Concomitant]
  8. LORTAB [Concomitant]
  9. DETROL [Concomitant]
  10. INDERAL [Concomitant]

REACTIONS (18)
  - ASTHENIA [None]
  - BACK PAIN [None]
  - CONSTIPATION [None]
  - DYSSTASIA [None]
  - EXTRADURAL ABSCESS [None]
  - FATIGUE [None]
  - HEAD LAG [None]
  - INTERVERTEBRAL DISCITIS [None]
  - MUSCLE SPASMS [None]
  - OSTEOMYELITIS [None]
  - PARAPLEGIA [None]
  - PATHOLOGICAL FRACTURE [None]
  - PSOAS ABSCESS [None]
  - SOFT TISSUE INFECTION [None]
  - SPINAL CORD COMPRESSION [None]
  - SPINAL CORD INFECTION [None]
  - STAPHYLOCOCCAL SEPSIS [None]
  - URINARY INCONTINENCE [None]
